FAERS Safety Report 5850608-1 (Version None)
Quarter: 2008Q3

REPORT INFORMATION
  Report Type: 
  Country: None (occurrence: None)
  Receive Date: 20080820
  Receipt Date: 20080812
  Transmission Date: 20090109
  Serious: Yes (Hospitalization)
  Sender: FDA-Public Use
  Company Number: US-JNJFOC-20070203342

PATIENT
  Age: 20 Year
  Sex: Female

DRUGS (4)
  1. REMICADE [Suspect]
     Dosage: ON INFLIXIMAB FOR 7 TO 8 YEARS
     Route: 042
  2. REMICADE [Suspect]
     Indication: CROHN'S DISEASE
     Dosage: ON INFLIXIMAB FOR 7 TO 8 YEARS
     Route: 042
  3. IMMUNOMODULATORS [Concomitant]
  4. MERCAPTOPURINE [Concomitant]

REACTIONS (5)
  - CHEST PAIN [None]
  - CORONARY ARTERY OCCLUSION [None]
  - DRUG INEFFECTIVE [None]
  - MYOCARDIAL INFARCTION [None]
  - PLATELET COUNT INCREASED [None]
